FAERS Safety Report 18506491 (Version 1)
Quarter: 2020Q4

REPORT INFORMATION
  Report Type: Spontaneous
  Country: US (occurrence: US)
  Receive Date: 20201113
  Receipt Date: 20201113
  Transmission Date: 20210114
  Serious: Yes (Hospitalization)
  Sender: FDA-Public Use
  Company Number: None

PATIENT
  Age: 18 Year
  Sex: Female
  Weight: 54 kg

DRUGS (3)
  1. TOPAMAX [Concomitant]
     Active Substance: TOPIRAMATE
  2. ONDANSETRON [Concomitant]
     Active Substance: ONDANSETRON
  3. EMGALITY [Suspect]
     Active Substance: GALCANEZUMAB-GNLM
     Indication: MIGRAINE
     Dosage: ?          OTHER FREQUENCY:MONTHLY;?
     Route: 058
     Dates: start: 20201030

REACTIONS (5)
  - Hypoaesthesia [None]
  - Paraesthesia [None]
  - Mobility decreased [None]
  - Dizziness [None]
  - Eye contusion [None]

NARRATIVE: CASE EVENT DATE: 20201030
